FAERS Safety Report 23012574 (Version 2)
Quarter: 2024Q2

REPORT INFORMATION
  Report Type: Spontaneous
  Country: US (occurrence: US)
  Receive Date: 20230930
  Receipt Date: 20240628
  Transmission Date: 20240716
  Serious: No
  Sender: FDA-Public Use
  Company Number: US-ABBVIE-5421165

PATIENT
  Age: 52 Year
  Sex: Female
  Weight: 70 kg

DRUGS (2)
  1. REFRESH RELIEVA PF [Suspect]
     Active Substance: CARBOXYMETHYLCELLULOSE SODIUM\GLYCERIN
     Indication: Dry eye
     Dosage: START DATE TEXT:2019 OR 2020
     Route: 047
     Dates: start: 2019, end: 20230917
  2. ALLEGRA [Concomitant]
     Active Substance: FEXOFENADINE HYDROCHLORIDE
     Indication: Hypersensitivity

REACTIONS (10)
  - Eye disorder [Recovering/Resolving]
  - Eye infection [Recovering/Resolving]
  - Eye irritation [Unknown]
  - Headache [Not Recovered/Not Resolved]
  - Sinusitis [Unknown]
  - Ocular discomfort [Recovering/Resolving]
  - Eye swelling [Recovering/Resolving]
  - Musculoskeletal stiffness [Recovering/Resolving]
  - Dysphagia [Recovering/Resolving]
  - Ocular hyperaemia [Recovering/Resolving]

NARRATIVE: CASE EVENT DATE: 20230911
